FAERS Safety Report 9074987 (Version 1)
Quarter: 2013Q1

REPORT INFORMATION
  Report Type: Spontaneous
  Country: US (occurrence: US)
  Receive Date: 20130128
  Receipt Date: 20130128
  Transmission Date: 20140127
  Serious: No
  Sender: FDA-Public Use
  Company Number: US-GLAXOSMITHKLINE-A0986354A

PATIENT
  Age: 59 Year
  Sex: Female

DRUGS (5)
  1. MEPRON [Suspect]
     Indication: LYME DISEASE
     Dosage: 750MG TWICE PER DAY
     Route: 048
     Dates: start: 201205
  2. PARNATE [Suspect]
     Indication: DEPRESSION
     Dosage: 25MG TWICE PER DAY
     Route: 048
  3. CEFTRIAXONE [Concomitant]
  4. ZITHROMAX [Concomitant]
  5. URSODIOL [Concomitant]

REACTIONS (2)
  - Blood pressure increased [Recovered/Resolved]
  - Drug interaction [Unknown]
